FAERS Safety Report 23363135 (Version 1)
Quarter: 2024Q1

REPORT INFORMATION
  Report Type: Spontaneous
  Country: FR (occurrence: FR)
  Receive Date: 20240103
  Receipt Date: 20240103
  Transmission Date: 20240410
  Serious: Yes (Other)
  Sender: FDA-Public Use
  Company Number: FR-ETHYPHARM-2023003263

PATIENT
  Sex: Female

DRUGS (3)
  1. MORPHINE SULFATE [Suspect]
     Active Substance: MORPHINE SULFATE
     Indication: Toothache
     Dosage: UNK
     Route: 065
     Dates: end: 202311
  2. TRAMADOL [Concomitant]
     Active Substance: TRAMADOL\TRAMADOL HYDROCHLORIDE
     Indication: Toothache
     Dosage: UNK
     Route: 065
     Dates: end: 202311
  3. CODEINE [Concomitant]
     Active Substance: CODEINE
     Indication: Toothache
     Dosage: UNK
     Route: 065
     Dates: end: 202311

REACTIONS (11)
  - Suicidal ideation [Unknown]
  - Suicide attempt [Unknown]
  - Drug dependence [Unknown]
  - Balance disorder [Unknown]
  - Electric shock sensation [Unknown]
  - Diarrhoea [Unknown]
  - Depression [Unknown]
  - Migraine [Unknown]
  - Pain in extremity [Unknown]
  - Amnesia [Unknown]
  - Nausea [Unknown]

NARRATIVE: CASE EVENT DATE: 20230101
